FAERS Safety Report 13484509 (Version 1)
Quarter: 2017Q2

REPORT INFORMATION
  Report Type: Other
  Country: US (occurrence: US)
  Receive Date: 20170425
  Receipt Date: 20170425
  Transmission Date: 20170830
  Serious: Yes (Other)
  Sender: FDA-Public Use
  Company Number: US-SHIRE-US201707340

PATIENT
  Age: 63 Year
  Sex: Female
  Weight: 56.69 kg

DRUGS (1)
  1. XIIDRA [Suspect]
     Active Substance: LIFITEGRAST
     Indication: DRY EYE
     Dosage: 1 GTT, 2X/DAY:BID
     Route: 047
     Dates: start: 20170329

REACTIONS (11)
  - Systemic inflammatory response syndrome [Unknown]
  - Headache [Recovered/Resolved]
  - Condition aggravated [Not Recovered/Not Resolved]
  - Eye swelling [Not Recovered/Not Resolved]
  - Ocular hyperaemia [Not Recovered/Not Resolved]
  - Dysgeusia [Recovered/Resolved]
  - Instillation site swelling [Not Recovered/Not Resolved]
  - Drug ineffective [Not Recovered/Not Resolved]
  - Eye irritation [Not Recovered/Not Resolved]
  - Instillation site erythema [Not Recovered/Not Resolved]
  - Instillation site irritation [Not Recovered/Not Resolved]

NARRATIVE: CASE EVENT DATE: 20170329
